FAERS Safety Report 22400124 (Version 1)
Quarter: 2023Q2

REPORT INFORMATION
  Report Type: Spontaneous
  Country: US (occurrence: None)
  Receive Date: 20230601
  Receipt Date: 20230601
  Transmission Date: 20230722
  Serious: Yes (Hospitalization)
  Sender: FDA-Public Use
  Company Number: None

PATIENT
  Age: 35 Year
  Sex: Female
  Weight: 83.7 kg

DRUGS (2)
  1. FERAHEME [Suspect]
     Active Substance: FERUMOXYTOL NON-STOICHIOMETRIC MAGNETITE
     Indication: Iron deficiency
     Route: 041
     Dates: start: 20230517, end: 20230517
  2. FERAHEME [Suspect]
     Active Substance: FERUMOXYTOL NON-STOICHIOMETRIC MAGNETITE
     Indication: Malabsorption

REACTIONS (3)
  - Dyspnoea [None]
  - Chest discomfort [None]
  - Pruritus [None]

NARRATIVE: CASE EVENT DATE: 20230517
